FAERS Safety Report 18334727 (Version 4)
Quarter: 2021Q2

REPORT INFORMATION
  Report Type: Report from Study
  Country: IT (occurrence: IT)
  Receive Date: 20201001
  Receipt Date: 20210528
  Transmission Date: 20210717
  Serious: No
  Sender: FDA-Public Use
  Company Number: IT-CELGENEUS-ITA-20200701947

PATIENT
  Age: 77 Year
  Sex: Male
  Weight: 67 kg

DRUGS (17)
  1. BISOPROLOL [Concomitant]
     Active Substance: BISOPROLOL
     Indication: ATRIAL FIBRILLATION
     Dosage: 2.5 MG X 2 X 1 DAYS
     Route: 048
  2. LEVOTIROXINA [Concomitant]
     Indication: HYPOTHYROIDISM
     Dosage: 50 UL/ML X 1 X 1 DAYS
     Route: 048
     Dates: start: 20190509
  3. NISTATINI (MYCOSTATIN) [Concomitant]
     Indication: INFECTION PROPHYLAXIS
     Dosage: 100.000 UNITS X 3 X 1 DAYS
     Route: 048
     Dates: start: 20200624, end: 20200707
  4. EDOXABAN [Concomitant]
     Active Substance: EDOXABAN TOSYLATE
     Indication: ATRIAL FIBRILLATION
     Dosage: 30 MG X 1 X 1 DAYS
     Route: 048
     Dates: start: 20180706, end: 20200604
  5. FUROSEMIDE. [Concomitant]
     Active Substance: FUROSEMIDE
     Indication: HYPERTENSION
     Dosage: 25 MG X 1 X 1 DAYS
     Route: 048
     Dates: start: 20190509
  6. PANTOPRAZOLE [Concomitant]
     Active Substance: PANTOPRAZOLE
     Indication: GASTROOESOPHAGEAL REFLUX DISEASE
     Dosage: 20 MG X 1 X 1 DAYS
     Route: 048
     Dates: start: 20190519, end: 20200604
  7. DANAZOLE [Concomitant]
     Indication: MYELOFIBROSIS
     Dosage: 200 MG X 2 X 1 DAYS
     Route: 048
     Dates: start: 20200707
  8. UMECLIDINIO BROMURO [Concomitant]
     Indication: CHRONIC OBSTRUCTIVE PULMONARY DISEASE
     Dosage: 55 UG X 1 X 1 DAYS
     Route: 055
     Dates: start: 20200604, end: 202007
  9. FEDRATINIB [Suspect]
     Active Substance: FEDRATINIB
     Indication: MYELOFIBROSIS
     Dosage: 400 MG X 1 X 1 DAYS
     Route: 048
     Dates: start: 20200110, end: 20200220
  10. ALLOPURINOLE [Concomitant]
     Indication: PROPHYLAXIS
     Dosage: 300 MG X 1 X 1 DAYS
     Route: 048
     Dates: start: 20200528
  11. MOVICOL [Concomitant]
     Active Substance: POLYETHYLENE GLYCOL 3350\POTASSIUM CHLORIDE\SODIUM BICARBONATE\SODIUM CHLORIDE
     Indication: CONSTIPATION PROPHYLAXIS
     Dosage: 13,8 G X OCCASIONAL
     Route: 048
     Dates: start: 20200615
  12. SPIRONOLATTONE [Concomitant]
     Active Substance: SPIRONOLACTONE
     Indication: HYPERTENSION
     Dosage: 37 MG X 1 X 1 DAYS
     Route: 048
     Dates: start: 20190509, end: 20200603
  13. ATORVASTATINA [Concomitant]
     Active Substance: ATORVASTATIN
     Indication: DYSLIPIDAEMIA
     Dosage: 10 MG X 1 X 1 DAYS
     Route: 048
     Dates: start: 20180503
  14. CLOREXIDINA [Concomitant]
     Indication: INFECTION PROPHYLAXIS
     Dosage: 0,2 % X 3 X 1 DAYS
     Route: 048
     Dates: start: 20200604
  15. ENOXAPARINA [Concomitant]
     Active Substance: ENOXAPARIN
     Indication: ATRIAL FIBRILLATION
     Dosage: 4000 IU X 1 X 1 DAYS
     Route: 030
     Dates: start: 20200612, end: 20200701
  16. BUDENOSIDE [Concomitant]
     Active Substance: BUDESONIDE
     Indication: CHRONIC OBSTRUCTIVE PULMONARY DISEASE
     Dosage: 200 UG X 2 X 1 DAYS
     Route: 055
     Dates: start: 20160906
  17. VITAMIN B6 [Concomitant]
     Active Substance: PYRIDOXINE HYDROCHLORIDE
     Indication: HYPOVITAMINOSIS
     Dosage: 300 MG X 1 X 1 DAYS
     Route: 048
     Dates: start: 20190307

REACTIONS (1)
  - Vitamin B1 decreased [Recovering/Resolving]

NARRATIVE: CASE EVENT DATE: 20200702
